FAERS Safety Report 5013457-2 (Version None)
Quarter: 2006Q2

REPORT INFORMATION
  Report Type: 
  Country: None (occurrence: None)
  Receive Date: 20060525
  Receipt Date: 20060525
  Transmission Date: 20061013
  Serious: Yes (Other)
  Sender: FDA-Public Use
  Company Number: None

PATIENT
  Age: 82 Year
  Sex: Female
  Weight: 52.7 kg

DRUGS (22)
  1. LEVOFLOXACIN [Suspect]
     Indication: PNEUMONIA
     Dosage: 750 MG DAILY IV
     Route: 042
     Dates: start: 20060423, end: 20060425
  2. LEVOFLOXACIN [Suspect]
     Indication: URINARY TRACT INFECTION
     Dosage: 750 MG DAILY IV
     Route: 042
     Dates: start: 20060423, end: 20060425
  3. AMIODARONE [Suspect]
     Indication: ATRIAL FIBRILLATION
     Dosage: 200 MG DAILY PO
     Route: 048
  4. VICODIN [Concomitant]
  5. DUONEBS [Concomitant]
  6. CALCITRIOL [Concomitant]
  7. PLAVIX [Concomitant]
  8. DILTIAZEM [Concomitant]
  9. SENOKOT [Concomitant]
  10. ARICEPT [Concomitant]
  11. DURAGESIC-100 [Concomitant]
  12. LASIX [Concomitant]
  13. ROBITUSSIN [Concomitant]
  14. LIDOCAINE [Concomitant]
  15. LISINOPRIL [Concomitant]
  16. LORAZEPAM [Concomitant]
  17. REMEROL [Concomitant]
  18. PROTONIX [Concomitant]
  19. POTASSIUM CHLORIDE [Concomitant]
  20. PREDNISONE [Concomitant]
  21. FLAGYL [Concomitant]
  22. FERROUS SULFATE TAB [Concomitant]

REACTIONS (2)
  - ELECTROCARDIOGRAM QT CORRECTED INTERVAL PROLONGED [None]
  - ELECTROCARDIOGRAM QT PROLONGED [None]
